FAERS Safety Report 10755668 (Version 1)
Quarter: 2015Q1

REPORT INFORMATION
  Report Type: Spontaneous
  Country: US (occurrence: None)
  Receive Date: 20150123
  Receipt Date: 20150123
  Transmission Date: 20150721
  Serious: No
  Sender: FDA-Public Use
  Company Number: 2014TUS010370

PATIENT
  Sex: Female

DRUGS (3)
  1. ENDOCORT (BUDESONIDE) [Concomitant]
  2. METHOTREXATE (METHOTREXATE) [Concomitant]
     Active Substance: METHOTREXATE
  3. ENTYVIO [Suspect]
     Active Substance: VEDOLIZUMAB
     Indication: CROHN^S DISEASE
     Dosage: 4.8 ML STERILE H20 IN 250 ML NS
     Route: 042
     Dates: start: 20141020

REACTIONS (2)
  - No adverse event [None]
  - Incorrect drug administration duration [None]

NARRATIVE: CASE EVENT DATE: 20141020
